FAERS Safety Report 22272575 (Version 1)
Quarter: 2023Q2

REPORT INFORMATION
  Report Type: Spontaneous
  Country: CH (occurrence: CH)
  Receive Date: 20230502
  Receipt Date: 20230502
  Transmission Date: 20230721
  Serious: Yes (Hospitalization)
  Sender: FDA-Public Use
  Company Number: None

PATIENT

DRUGS (7)
  1. INFLECTRA [Suspect]
     Active Substance: INFLIXIMAB-DYYB
     Indication: Colitis ulcerative
     Dosage: 100 MG/DOSE (5.5 MG/KG) FOR THE FIRST 4 DOSES
     Route: 041
     Dates: start: 20221013, end: 20230112
  2. INFLECTRA [Suspect]
     Active Substance: INFLIXIMAB-DYYB
     Dosage: 180 MG/DOSE (10 MG/KG) FOR THE 3 DOSES
     Route: 041
     Dates: start: 20230113, end: 20230317
  3. IMUREK [AZATHIOPRINE SODIUM] [Concomitant]
     Indication: Colitis ulcerative
     Dosage: 25 MG 1X/2 DAYS
     Route: 048
     Dates: start: 20220126
  4. IMUREK [AZATHIOPRINE SODIUM] [Concomitant]
     Dosage: 17.5 MG, 1X/DAY
     Route: 048
     Dates: start: 20220207
  5. IMUREK [AZATHIOPRINE SODIUM] [Concomitant]
     Dosage: 25 MG, 1X/DAY
     Route: 048
     Dates: start: 20220318
  6. MESALAMINE [Concomitant]
     Active Substance: MESALAMINE
     Indication: Colitis ulcerative
     Dosage: 1000 MG, 1X/DAY
     Route: 048
     Dates: start: 202202
  7. PREDNISONE [Concomitant]
     Active Substance: PREDNISONE
     Indication: Colitis ulcerative
     Dosage: 15 MG, 1X/DAY
     Route: 048
     Dates: start: 202201, end: 202211

REACTIONS (5)
  - Encephalitis [Recovering/Resolving]
  - Aqueductal stenosis [Recovering/Resolving]
  - Pleocytosis [Recovering/Resolving]
  - Upper respiratory tract infection [Unknown]
  - Off label use [Unknown]

NARRATIVE: CASE EVENT DATE: 20220101
